FAERS Safety Report 5084838-6 (Version None)
Quarter: 2006Q3

REPORT INFORMATION
  Report Type: 
  Country: None (occurrence: None)
  Receive Date: 20060815
  Receipt Date: 20060808
  Transmission Date: 20061208
  Serious: Yes (Congenital Anomaly)
  Sender: FDA-Public Use
  Company Number: 111802ISR

PATIENT
  Age: 6 Month
  Sex: Male

DRUGS (3)
  1. CLARITHROMYCIN [Suspect]
     Indication: HELICOBACTER INFECTION
     Route: 064
     Dates: start: 20050310, end: 20060317
  2. LANSOPRAZOLE [Suspect]
     Indication: HELICOBACTER INFECTION
     Dates: start: 20060310, end: 20060317
  3. AMOXICILLIN [Suspect]
     Indication: HELICOBACTER INFECTION
     Dates: start: 20060310, end: 20060317

REACTIONS (2)
  - ANKYLOGLOSSIA CONGENITAL [None]
  - DRUG EXPOSURE DURING PREGNANCY [None]
